FAERS Safety Report 6806084-5 (Version None)
Quarter: 2010Q2

REPORT INFORMATION
  Report Type: 
  Country: None (occurrence: None)
  Receive Date: 20100629
  Receipt Date: 20080126
  Transmission Date: 20101027
  Serious: No
  Sender: FDA-Public Use
  Company Number: US-PFIZER INC-2007098832

PATIENT
  Sex: Female

DRUGS (3)
  1. ALPRAZOLAM [Suspect]
  2. XANAX [Suspect]
  3. GLYBURIDE [Suspect]

REACTIONS (2)
  - EUPHORIC MOOD [None]
  - RASH [None]
